FAERS Safety Report 16947036 (Version 3)
Quarter: 2020Q2

REPORT INFORMATION
  Report Type: Spontaneous
  Country: US (occurrence: US)
  Receive Date: 20191022
  Receipt Date: 20200511
  Transmission Date: 20200713
  Serious: No
  Sender: FDA-Public Use
  Company Number: US-PFIZER INC-2019453360

PATIENT
  Age: 69 Year
  Sex: Female

DRUGS (2)
  1. FULVESTRANT. [Concomitant]
     Active Substance: FULVESTRANT
     Dosage: UNK
     Route: 030
  2. IBRANCE [Suspect]
     Active Substance: PALBOCICLIB
     Indication: BREAST CANCER FEMALE
     Dosage: 75 MG, CYCLIC [DAILY FOR 7 DAYS, 14 DAYS OFF EVERY 21 DAYS]
     Route: 048

REACTIONS (6)
  - Diarrhoea [Recovered/Resolved]
  - Product use issue [Unknown]
  - Lymphoedema [Recovering/Resolving]
  - Memory impairment [Unknown]
  - Fatigue [Recovering/Resolving]
  - Off label use [Unknown]
